FAERS Safety Report 8225409-X (Version None)
Quarter: 2012Q1

REPORT INFORMATION
  Report Type: 
  Country: None (occurrence: None)
  Receive Date: 20120307
  Receipt Date: 20100323
  Transmission Date: 20120608
  Serious: No
  Sender: FDA-Public Use
  Company Number: PHHY2010US18507

PATIENT
  Sex: Male

DRUGS (2)
  1. AFINITOR [Suspect]
     Dosage: 10 MG
     Dates: start: 20100309
  2. INTERLEUKIN-2 (ALDESLEUKIN) UNKNOWN [Suspect]

REACTIONS (6)
  - ODYNOPHAGIA [None]
  - EPISTAXIS [None]
  - MOUTH ULCERATION [None]
  - DYSPNOEA [None]
  - STOMATITIS [None]
  - DIARRHOEA [None]
